FAERS Safety Report 14211231 (Version 1)
Quarter: 2017Q4

REPORT INFORMATION
  Report Type: Spontaneous
  Country: IN (occurrence: IN)
  Receive Date: 20171121
  Receipt Date: 20171121
  Transmission Date: 20180321
  Serious: Yes (Other)
  Sender: FDA-Public Use
  Company Number: IN-PFIZER INC-2017486890

PATIENT
  Age: 35 Year
  Sex: Female

DRUGS (2)
  1. PALBACE [Suspect]
     Active Substance: PALBOCICLIB
     Indication: BREAST CANCER METASTATIC
     Dosage: 100 MG, 1X/DAY
     Route: 048
  2. ALTRAZ [Suspect]
     Active Substance: ANASTROZOLE
     Dosage: UNK

REACTIONS (2)
  - Pulmonary oedema [Unknown]
  - Product use in unapproved indication [Unknown]
